FAERS Safety Report 4609728-1 (Version None)
Quarter: 2005Q1

REPORT INFORMATION
  Report Type: 
  Country: None (occurrence: None)
  Receive Date: 20050314
  Receipt Date: 20041001
  Transmission Date: 20050727
  Serious: Yes (Hospitalization)
  Sender: FDA-Public Use
  Company Number: 9008

PATIENT
  Age: 56 Year
  Sex: Male

DRUGS (1)
  1. MORPHINE [Suspect]
     Dosage: 30 MG QID

REACTIONS (2)
  - ACCIDENTAL OVERDOSE [None]
  - RESPIRATORY RATE DECREASED [None]
